FAERS Safety Report 20473831 (Version 1)
Quarter: 2022Q1

REPORT INFORMATION
  Report Type: Spontaneous
  Country: JP (occurrence: JP)
  Receive Date: 20220215
  Receipt Date: 20220215
  Transmission Date: 20220424
  Serious: Yes (Hospitalization, Other)
  Sender: FDA-Public Use
  Company Number: JP-RISINGPHARMA-JP-2022RISLIT00122

PATIENT
  Age: 79 Year
  Sex: Male

DRUGS (3)
  1. METHIMAZOLE [Suspect]
     Active Substance: METHIMAZOLE
     Indication: Basedow^s disease
     Route: 065
     Dates: start: 1991
  2. METHIMAZOLE [Suspect]
     Active Substance: METHIMAZOLE
     Route: 065
  3. LEVOTHYROXINE [Suspect]
     Active Substance: LEVOTHYROXINE
     Indication: Basedow^s disease
     Route: 065
     Dates: start: 2013

REACTIONS (3)
  - Optic neuropathy [Unknown]
  - Pachymeningitis [Unknown]
  - Antineutrophil cytoplasmic antibody [Recovered/Resolved]
